FAERS Safety Report 12216743 (Version 1)
Quarter: 2016Q1

REPORT INFORMATION
  Report Type: Spontaneous
  Country: US (occurrence: None)
  Receive Date: 20160328
  Receipt Date: 20160328
  Transmission Date: 20160526
  Serious: Yes (Hospitalization)
  Sender: FDA-Public Use
  Company Number: None

PATIENT
  Age: 43 Year
  Sex: Male
  Weight: 90.6 kg

DRUGS (23)
  1. MIDAZOLAM [Concomitant]
     Active Substance: MIDAZOLAM\MIDAZOLAM HYDROCHLORIDE
  2. MYCOPHENOLATE [Concomitant]
     Active Substance: MYCOPHENOLIC ACID
  3. ALBUTEROL. [Concomitant]
     Active Substance: ALBUTEROL
  4. FERROUS FUMARATE [Concomitant]
     Active Substance: FERROUS FUMARATE
  5. FLUCONAZOLE. [Concomitant]
     Active Substance: FLUCONAZOLE
  6. HYDROMORPHONE [Concomitant]
     Active Substance: HYDROMORPHONE
  7. NYSTATIN. [Concomitant]
     Active Substance: NYSTATIN
  8. COLISTIMETHATE [Concomitant]
     Active Substance: COLISTIMETHATE SODIUM
  9. ACETAMINOPHEN. [Concomitant]
     Active Substance: ACETAMINOPHEN
  10. SODIUM BICARBONATE. [Concomitant]
     Active Substance: SODIUM BICARBONATE
  11. VANCOMYCIN [Concomitant]
     Active Substance: VANCOMYCIN
  12. ACETYLCYSETINE [Concomitant]
  13. INSULIN [Concomitant]
     Active Substance: INSULIN NOS
  14. MAGNESIUM OXIDE. [Concomitant]
     Active Substance: MAGNESIUM OXIDE
  15. OLANZAPINE. [Concomitant]
     Active Substance: OLANZAPINE
  16. VALGANCICLOVIR [Concomitant]
     Active Substance: VALGANCICLOVIR
  17. TACROLIMUS 5 MG/ML ASTELLAS [Suspect]
     Active Substance: TACROLIMUS
     Indication: IMMUNOSUPPRESSION
     Dosage: 80 UG HOURLY
     Route: 041
     Dates: start: 20160320, end: 20160324
  18. FENTANYL. [Concomitant]
     Active Substance: FENTANYL
  19. DOXEPIN [Concomitant]
     Active Substance: DOXEPIN
  20. PANTOPRAZOLE [Concomitant]
     Active Substance: PANTOPRAZOLE SODIUM
  21. CREON 24 [Concomitant]
     Active Substance: AMYLASE\LIPASE\PROTEASE
  22. BACTRIM SUSPENSION [Concomitant]
  23. TIGECYCLINE. [Concomitant]
     Active Substance: TIGECYCLINE

REACTIONS (2)
  - Product quality issue [None]
  - Drug level below therapeutic [None]

NARRATIVE: CASE EVENT DATE: 20160322
